FAERS Safety Report 9698048 (Version 4)
Quarter: 2014Q1

REPORT INFORMATION
  Report Type: Spontaneous
  Country: JP (occurrence: JP)
  Receive Date: 20131120
  Receipt Date: 20140321
  Transmission Date: 20141002
  Serious: Yes (Other)
  Sender: FDA-Public Use
  Company Number: PHHY2013JP130815

PATIENT
  Age: 18 Year
  Sex: Male

DRUGS (8)
  1. NEORAL [Suspect]
     Indication: CORD BLOOD TRANSPLANT THERAPY
     Route: 048
  2. NEORAL [Suspect]
     Indication: GRAFT VERSUS HOST DISEASE
  3. METHOTREXATE [Suspect]
     Indication: CORD BLOOD TRANSPLANT THERAPY
  4. METHOTREXATE [Suspect]
     Indication: GRAFT VERSUS HOST DISEASE
  5. CISPLATIN [Suspect]
     Indication: CHEMOTHERAPY
     Dosage: 165 MG/M2, UNK
  6. CARBOPLATIN [Suspect]
     Indication: CHEMOTHERAPY
     Dosage: 1840 MG/M2, UNK
  7. FLUDARABINE [Suspect]
     Dosage: 125 MG/M2, UNK
  8. MELPHALAN [Suspect]
     Dosage: 120 MG/M2, UNK

REACTIONS (11)
  - Thrombotic microangiopathy [Recovered/Resolved]
  - Renal failure acute [Recovered/Resolved]
  - Oliguria [Recovered/Resolved]
  - Oedema [Recovered/Resolved]
  - Renal impairment [Recovered/Resolved]
  - Anuria [Recovered/Resolved]
  - Hyperbilirubinaemia [Recovered/Resolved]
  - Myelodysplastic syndrome [Unknown]
  - Anaemia [Unknown]
  - Platelet count decreased [Unknown]
  - Refractoriness to platelet transfusion [Unknown]
